FAERS Safety Report 18205484 (Version 1)
Quarter: 2020Q3

REPORT INFORMATION
  Report Type: Spontaneous
  Country: ES (occurrence: ES)
  Receive Date: 20200828
  Receipt Date: 20200828
  Transmission Date: 20201103
  Serious: Yes (Life-Threatening, Hospitalization)
  Sender: FDA-Public Use
  Company Number: ES-TEVA-2020-ES-1820413

PATIENT
  Age: 47 Year
  Sex: Male

DRUGS (1)
  1. NAPROXENO 500 MG COMPRIMIDO [Suspect]
     Active Substance: NAPROXEN
     Indication: MYALGIA
     Route: 048
     Dates: start: 20200807, end: 20200807

REACTIONS (1)
  - Anaphylactic shock [Recovering/Resolving]

NARRATIVE: CASE EVENT DATE: 20200807
